FAERS Safety Report 14664111 (Version 1)
Quarter: 2018Q1

REPORT INFORMATION
  Report Type: Spontaneous
  Country: GB (occurrence: GB)
  Receive Date: 20180321
  Receipt Date: 20180321
  Transmission Date: 20180509
  Serious: Yes (Other)
  Sender: FDA-Public Use
  Company Number: GB-009507513-1803GBR008192

PATIENT

DRUGS (2)
  1. RALTEGRAVIR POTASSIUM [Suspect]
     Active Substance: RALTEGRAVIR POTASSIUM
     Indication: PRODUCT USED FOR UNKNOWN INDICATION
     Dosage: UNK
  2. DOLUTEGRAVIR [Suspect]
     Active Substance: DOLUTEGRAVIR
     Indication: PERINATAL HIV INFECTION
     Dosage: UNK

REACTIONS (8)
  - Hypertension [Unknown]
  - Hypersensitivity [Unknown]
  - Toxicity to various agents [Unknown]
  - Hepatitis [Unknown]
  - Blood creatine phosphokinase increased [Unknown]
  - Depressed mood [Unknown]
  - Fatigue [Unknown]
  - Sleep disorder [Unknown]
